FAERS Safety Report 10396696 (Version 1)
Quarter: 2014Q3

REPORT INFORMATION
  Report Type: Spontaneous
  Country: CA (occurrence: CA)
  Receive Date: 20140820
  Receipt Date: 20140820
  Transmission Date: 20150326
  Serious: Yes (Life-Threatening, Hospitalization, Disabling)
  Sender: FDA-Public Use
  Company Number: CA-GLAXOSMITHKLINE-A1085406A

PATIENT
  Age: 28 Year
  Sex: Female
  Weight: 63.6 kg

DRUGS (1)
  1. MALARONE [Suspect]
     Active Substance: ATOVAQUONE\PROGUANIL HYDROCHLORIDE
     Indication: PRODUCT USED FOR UNKNOWN INDICATION
     Dosage: 1TAB PER DAY
     Route: 048

REACTIONS (5)
  - Drug ineffective [Unknown]
  - Parasitic gastroenteritis [Unknown]
  - Convulsion [Unknown]
  - Malaria [Unknown]
  - Arthropod bite [Unknown]
